FAERS Safety Report 5367360-9 (Version None)
Quarter: 2007Q2

REPORT INFORMATION
  Report Type: 
  Country: None (occurrence: None)
  Receive Date: 20070622
  Receipt Date: 20060608
  Transmission Date: 20071010
  Serious: No
  Sender: FDA-Public Use
  Company Number: US-ASTRAZENECA-2006UW12355

PATIENT
  Age: 9 Year
  Sex: Male
  Weight: 31.8 kg

DRUGS (5)
  1. PULMICORT RESPULES [Suspect]
     Indication: DYSPNOEA
     Route: 055
     Dates: start: 20030101
  2. KEPPRA [Concomitant]
  3. ZONEGRAN [Concomitant]
  4. LORAZEPAM [Concomitant]
  5. PREVACID [Concomitant]

REACTIONS (3)
  - DRY SKIN [None]
  - RASH [None]
  - SKIN IRRITATION [None]
